FAERS Safety Report 19760010 (Version 1)
Quarter: 2021Q3

REPORT INFORMATION
  Report Type: Spontaneous
  Country: CN (occurrence: CN)
  Receive Date: 20210830
  Receipt Date: 20210830
  Transmission Date: 20211014
  Serious: Yes (Other)
  Sender: FDA-Public Use
  Company Number: CN-JIANGSU HENGRUI MEDICINE CO., LTD.-2117790

PATIENT
  Age: 38 Year
  Sex: Female

DRUGS (6)
  1. BEVACIZUMAB. [Suspect]
     Active Substance: BEVACIZUMAB
     Dates: start: 20190508, end: 20190829
  2. CALCIUM FOLINATE INJECTION [Suspect]
     Active Substance: LEUCOVORIN CALCIUM
     Dates: start: 20160822, end: 20180209
  3. IRINOTECAN HYDROCHLORIDE FOR INJECTION [Suspect]
     Active Substance: IRINOTECAN HYDROCHLORIDE
     Dates: start: 20170912, end: 20190829
  4. 5?FLUOROURACIL [Suspect]
     Active Substance: FLUOROURACIL
     Dates: start: 20160822, end: 20180209
  5. OXALIPLATIN INJECTION USP, 5 MG/ML, PACKAGED IN 50 MG/10 ML AND 100 MG [Suspect]
     Active Substance: OXALIPLATIN
     Indication: COLON CANCER STAGE III
     Dates: start: 20160822
  6. RALTITREXED [Suspect]
     Active Substance: RALTITREXED
     Dates: start: 20190508, end: 20190829

REACTIONS (5)
  - Hyperpyrexia [Unknown]
  - Myelosuppression [Unknown]
  - Hepatic function abnormal [Unknown]
  - Gastrointestinal disorder [Unknown]
  - Pyrexia [Unknown]
